FAERS Safety Report 17774679 (Version 8)
Quarter: 2021Q2

REPORT INFORMATION
  Report Type: Report from Study
  Country: US (occurrence: US)
  Receive Date: 20200513
  Receipt Date: 20210527
  Transmission Date: 20210716
  Serious: Yes (Death, Hospitalization, Other)
  Sender: FDA-Public Use
  Company Number: US-ACADIA PHARMACEUTICALS INC.-ACA-2019-015236

PATIENT
  Age: 80 Year
  Sex: Male

DRUGS (5)
  1. NUPLAZID [Suspect]
     Active Substance: PIMAVANSERIN TARTRATE
     Indication: PARKINSON^S DISEASE
     Dosage: UNK
     Route: 048
  2. NUPLAZID [Suspect]
     Active Substance: PIMAVANSERIN TARTRATE
     Indication: HALLUCINATION
     Dosage: 34 MILLIGRAM, QD
     Route: 048
     Dates: start: 20200612, end: 2020
  3. NUPLAZID [Suspect]
     Active Substance: PIMAVANSERIN TARTRATE
     Indication: DELUSION
     Dosage: 34 MILLIGRAM, QD
     Route: 048
     Dates: start: 2020
  4. NUPLAZID [Suspect]
     Active Substance: PIMAVANSERIN TARTRATE
     Indication: PSYCHOTIC DISORDER
  5. NUPLAZID [Suspect]
     Active Substance: PIMAVANSERIN TARTRATE
     Indication: PARKINSON^S DISEASE PSYCHOSIS
     Dosage: 34 MILLIGRAM, QD
     Route: 048
     Dates: start: 20191224, end: 20200610

REACTIONS (27)
  - Death [Fatal]
  - Back pain [Not Recovered/Not Resolved]
  - Pneumonia [Unknown]
  - Anaemia [Unknown]
  - Dizziness [Unknown]
  - Sinusitis [Recovered/Resolved]
  - Dizziness [Not Recovered/Not Resolved]
  - Mental status changes [Unknown]
  - Fall [Unknown]
  - Faeces discoloured [Unknown]
  - Hypersensitivity [Unknown]
  - Fall [Unknown]
  - Asthenia [Unknown]
  - Delusion [Unknown]
  - Product dose omission issue [Unknown]
  - Peripheral swelling [Not Recovered/Not Resolved]
  - Hallucination [Not Recovered/Not Resolved]
  - Dementia [Unknown]
  - Abnormal faeces [Unknown]
  - Product dose omission issue [Unknown]
  - Polyp [Unknown]
  - Adverse event [Unknown]
  - Malaise [Unknown]
  - Abdominal pain upper [Unknown]
  - Bowel movement irregularity [Unknown]
  - Decubitus ulcer [Unknown]
  - Constipation [Unknown]

NARRATIVE: CASE EVENT DATE: 2020
